FAERS Safety Report 10155038 (Version 1)
Quarter: 2014Q2

REPORT INFORMATION
  Report Type: Spontaneous
  Country: US (occurrence: US)
  Receive Date: 20140506
  Receipt Date: 20140506
  Transmission Date: 20141212
  Serious: Yes (Hospitalization, Other)
  Sender: FDA-Public Use
  Company Number: US-PFIZER INC-2014120870

PATIENT
  Age: 7 Decade
  Sex: Female

DRUGS (1)
  1. XALKORI [Suspect]
     Dosage: UNK

REACTIONS (2)
  - Cerebral haemorrhage [Unknown]
  - Platelet count decreased [Unknown]
